FAERS Safety Report 4282241-X (Version None)
Quarter: 2004Q1

REPORT INFORMATION
  Report Type: 
  Country: None (occurrence: None)
  Receive Date: 20040130
  Receipt Date: 20040129
  Transmission Date: 20041129
  Serious: Yes (Other)
  Sender: FDA-Public Use
  Company Number: US-GLAXOSMITHKLINE-A0495767A

PATIENT
  Age: 49 Year
  Sex: Female

DRUGS (2)
  1. ESKALITH [Suspect]
     Route: 065
     Dates: start: 19840801, end: 19881101
  2. THORAZINE [Concomitant]

REACTIONS (2)
  - AUTOIMMUNE THYROIDITIS [None]
  - HYPOTHYROIDISM [None]
